FAERS Safety Report 5217589-5 (Version None)
Quarter: 2007Q1

REPORT INFORMATION
  Report Type: 
  Country: None (occurrence: None)
  Receive Date: 20070124
  Receipt Date: 20060418
  Transmission Date: 20070707
  Serious: No
  Sender: FDA-Public Use
  Company Number: US-GLAXOSMITHKLINE-A0602193A

PATIENT
  Age: 65 Year
  Sex: Female

DRUGS (10)
  1. PAXIL CR [Suspect]
     Indication: DEPRESSION
     Dosage: 25MG PER DAY
     Route: 048
  2. WELLBUTRIN XL [Suspect]
     Indication: DEPRESSION
     Dosage: 300MG PER DAY
     Route: 048
     Dates: start: 20060227
  3. GLUCOTROL [Concomitant]
  4. GLUCOPHAGE [Concomitant]
  5. INSULIN [Concomitant]
  6. HORMONES [Concomitant]
  7. LORA TAB [Concomitant]
  8. SOMA [Concomitant]
  9. VALIUM [Concomitant]
  10. TENEX [Concomitant]

REACTIONS (2)
  - WEIGHT DECREASED [None]
  - WEIGHT INCREASED [None]
